FAERS Safety Report 7249273-0 (Version None)
Quarter: 2011Q1

REPORT INFORMATION
  Report Type: 
  Country: None (occurrence: None)
  Receive Date: 20110128
  Receipt Date: 20101123
  Transmission Date: 20110831
  Serious: Yes (Hospitalization, Other)
  Sender: FDA-Public Use
  Company Number: US-BAYER-201030112NA

PATIENT
  Sex: Female

DRUGS (3)
  1. YAZ [Suspect]
     Indication: DYSFUNCTIONAL UTERINE BLEEDING
     Dosage: UNK UNK, UNK
     Route: 048
     Dates: start: 20070520, end: 20070616
  2. YASMIN [Suspect]
     Indication: PRODUCT USED FOR UNKNOWN INDICATION
     Dosage: UNK UNK, UNK
     Route: 048
  3. LOVASTATIN [Concomitant]
     Indication: BLOOD CHOLESTEROL INCREASED

REACTIONS (13)
  - VAGINAL HAEMORRHAGE [None]
  - DYSPNOEA [None]
  - URINARY RETENTION [None]
  - ABDOMINAL PAIN [None]
  - ABDOMINAL TENDERNESS [None]
  - ABDOMINAL DISTENSION [None]
  - PULMONARY EMBOLISM [None]
  - CONSTIPATION [None]
  - ENDOMETRIOSIS [None]
  - PLEURITIC PAIN [None]
  - TACHYCARDIA [None]
  - THROMBOSIS [None]
  - BACK PAIN [None]
